FAERS Safety Report 7831513-8 (Version None)
Quarter: 2011Q4

REPORT INFORMATION
  Report Type: 
  Country: None (occurrence: None)
  Receive Date: 20111021
  Receipt Date: 20111013
  Transmission Date: 20120403
  Serious: Yes (Hospitalization, Other)
  Sender: FDA-Public Use
  Company Number: US-SANOFI-AVENTIS-2011SA068265

PATIENT
  Age: 70 Year
  Sex: Male
  Weight: 66.22 kg

DRUGS (2)
  1. LANTUS [Suspect]
     Indication: TYPE 2 DIABETES MELLITUS
     Dosage: IN THE EVENINGS
     Route: 058
  2. NOVOLOG [Concomitant]
     Dosage: AS NEEDED

REACTIONS (3)
  - THROMBOSIS [None]
  - DIABETIC ULCER [None]
  - TOE AMPUTATION [None]
